FAERS Safety Report 6186147-0 (Version None)
Quarter: 2009Q2

REPORT INFORMATION
  Report Type: 
  Country: None (occurrence: None)
  Receive Date: 20090511
  Receipt Date: 20090506
  Transmission Date: 20091009
  Serious: Yes (Hospitalization)
  Sender: FDA-Public Use
  Company Number: IN-AVENTIS-200914672GDDC

PATIENT
  Age: 62 Year
  Sex: Male

DRUGS (1)
  1. APIDRA [Suspect]
     Indication: DIABETES MELLITUS
     Route: 058

REACTIONS (4)
  - ANGINA PECTORIS [None]
  - DIZZINESS [None]
  - EPISTAXIS [None]
  - HYPERHIDROSIS [None]
